FAERS Safety Report 7777632 (Version 2)
Quarter: 2012Q4

REPORT INFORMATION
  Report Type: 
  Country: US (occurrence: US)
  Receive Date: 20110128
  Receipt Date: 20121022
  Transmission Date: 20130627
  Serious: Yes (Life-Threatening, Hospitalization)
  Sender: FDA-Public Use
  Company Number: US-BAYER-2010-004352

PATIENT
  Age: 54 Year
  Sex: Female

DRUGS (19)
  1. YAZ [Suspect]
     Indication: MENSTRUATION IRREGULAR
     Dosage: UNK
     Route: 048
     Dates: start: 200812, end: 200909
  2. YAZ [Suspect]
     Indication: MENOPAUSAL SYMPTOMS
  3. DITROPAN XL [Concomitant]
     Dosage: UNK
     Dates: start: 20090921
  4. ALLEGRA [Concomitant]
     Dosage: UNK
     Dates: start: 20090921
  5. MAALOX [Concomitant]
  6. MOTRIN [Concomitant]
  7. VITAMIN B12 [Concomitant]
  8. VITAMIN B12 AND FOLIC ACID [Concomitant]
  9. OXYBUTYNIN [Concomitant]
  10. FABB [Concomitant]
  11. VITAMIN D [Concomitant]
  12. DENTA 5000 PLUS [Concomitant]
  13. FEXOFENADINE [Concomitant]
  14. FOLGARD RX [Concomitant]
  15. CARBOFED DM [BROMPHEN MAL,DEXTROMET HBR,PSEUDOEPH HCL] [Concomitant]
  16. CALCIUM D [Concomitant]
  17. DRISDOL [Concomitant]
  18. LOTRIMIN [Concomitant]
  19. PROAIR HFA [Concomitant]

REACTIONS (6)
  - Pulmonary embolism [None]
  - Deep vein thrombosis [None]
  - Nervous system disorder [None]
  - Angiopathy [None]
  - Dyspnoea [None]
  - Paraesthesia [None]
